FAERS Safety Report 8316738-X (Version None)
Quarter: 2012Q2

REPORT INFORMATION
  Report Type: 
  Country: None (occurrence: None)
  Receive Date: 20120425
  Receipt Date: 20120425
  Transmission Date: 20120825
  Serious: Yes (Hospitalization)
  Sender: FDA-Public Use
  Company Number: None

PATIENT
  Age: 51 Year
  Sex: Male
  Weight: 86.4 kg

DRUGS (8)
  1. ASPIRIN [Concomitant]
  2. LAMICTAL [Concomitant]
  3. CLOZAPINE [Suspect]
     Indication: SCHIZOPHRENIA, DISORGANISED TYPE
     Dosage: 25MG AT BEDTIME ORAL
     Route: 048
     Dates: start: 20060601, end: 20120301
  4. FISH OIL [Concomitant]
  5. MULTI-VITAMIN [Concomitant]
  6. SOLIAN (AMISULPRIDE) 200MG SANOFI AVENTIS [Suspect]
     Indication: SCHIZOPHRENIA, DISORGANISED TYPE
     Dosage: 200MG TWICE A DAY ORAL
     Route: 048
     Dates: start: 20100401, end: 20120301
  7. KLONOPIN [Concomitant]
  8. LITHIUM CARBONATE [Concomitant]

REACTIONS (10)
  - CONFUSIONAL STATE [None]
  - BLOOD CREATINE PHOSPHOKINASE INCREASED [None]
  - DIET REFUSAL [None]
  - PYREXIA [None]
  - HYPOTENSION [None]
  - OXYGEN SATURATION DECREASED [None]
  - AGITATION [None]
  - NEUROLEPTIC MALIGNANT SYNDROME [None]
  - HEART RATE INCREASED [None]
  - TARDIVE DYSKINESIA [None]
